FAERS Safety Report 12388516 (Version 1)
Quarter: 2016Q2

REPORT INFORMATION
  Report Type: Spontaneous
  Country: US (occurrence: US)
  Receive Date: 20160520
  Receipt Date: 20160520
  Transmission Date: 20160815
  Serious: Yes (Hospitalization)
  Sender: FDA-Public Use
  Company Number: US-PERRIGO-16US015997

PATIENT
  Age: 98 Year
  Sex: Female
  Weight: 45.81 kg

DRUGS (6)
  1. TUSSIN [Suspect]
     Active Substance: GUAIFENESIN
     Indication: COUGH
     Dosage: 10 ML, SINGLE
     Route: 048
     Dates: start: 20151001, end: 20151001
  2. FAMOTIDINE. [Concomitant]
     Active Substance: FAMOTIDINE
     Indication: NEUROPATHY PERIPHERAL
     Dosage: 20 MG, UNK
     Route: 048
  3. LEVOTHYROXINE. [Concomitant]
     Active Substance: LEVOTHYROXINE
     Indication: HYPERTHYROIDISM
     Dosage: 88 MCG, UNK
     Route: 048
  4. TUSSIN [Suspect]
     Active Substance: GUAIFENESIN
     Dosage: 5 ML, SINGLE
     Route: 048
     Dates: start: 20160505, end: 20160505
  5. ARIMIDEX [Concomitant]
     Active Substance: ANASTROZOLE
     Indication: NEOPLASM MALIGNANT
     Dosage: UNK
     Route: 065
  6. GABAPENTIN. [Concomitant]
     Active Substance: GABAPENTIN
     Indication: NEUROPATHY PERIPHERAL
     Dosage: UNK
     Route: 048

REACTIONS (7)
  - Inappropriate antidiuretic hormone secretion [Recovered/Resolved]
  - Amnesia [Recovered/Resolved]
  - Thirst [Recovered/Resolved]
  - Incorrect dose administered [Recovered/Resolved]
  - Feeling jittery [Recovering/Resolving]
  - Fall [Recovered/Resolved]
  - Agitation [Recovered/Resolved]

NARRATIVE: CASE EVENT DATE: 20151001
